FAERS Safety Report 13960050 (Version 2)
Quarter: 2017Q4

REPORT INFORMATION
  Report Type: Report from Study
  Country: US (occurrence: US)
  Receive Date: 20170912
  Receipt Date: 20171019
  Transmission Date: 20180320
  Serious: Yes (Other)
  Sender: FDA-Public Use
  Company Number: US-AMGEN-USASL2017136166

PATIENT
  Age: 54 Year
  Sex: Female

DRUGS (1)
  1. ENBREL [Suspect]
     Active Substance: ETANERCEPT
     Indication: RHEUMATOID ARTHRITIS
     Dosage: 50 MG, QWK
     Route: 065

REACTIONS (4)
  - Rash [Unknown]
  - Rheumatoid arthritis [Not Recovered/Not Resolved]
  - Drug dose omission [Unknown]
  - Injection site discharge [Unknown]

NARRATIVE: CASE EVENT DATE: 20170906
